FAERS Safety Report 8343521-1 (Version None)
Quarter: 2012Q2

REPORT INFORMATION
  Report Type: 
  Country: None (occurrence: None)
  Receive Date: 20120508
  Receipt Date: 20120426
  Transmission Date: 20120825
  Serious: Yes (Other)
  Sender: FDA-Public Use
  Company Number: AU-CELGENEUS-008-C5013-12033353

PATIENT
  Sex: Female

DRUGS (4)
  1. THALIDOMIDE [Suspect]
     Indication: MULTIPLE MYELOMA
     Route: 048
     Dates: start: 20100521, end: 20110425
  2. PREDNISONE TAB [Suspect]
     Indication: MULTIPLE MYELOMA
     Dosage: 2MG/KG
     Route: 065
     Dates: start: 20100521, end: 20110321
  3. MELPHALAN HYDROCHLORIDE [Suspect]
     Indication: MULTIPLE MYELOMA
     Dosage: 020 MG/KG
     Route: 065
     Dates: start: 20100521
  4. MELPHALAN HYDROCHLORIDE [Suspect]
     Dosage: 0.10 MG/KG
     Route: 065
     Dates: end: 20110321

REACTIONS (1)
  - MYELODYSPLASTIC SYNDROME [None]
